FAERS Safety Report 6693285-2 (Version None)
Quarter: 2010Q2

REPORT INFORMATION
  Report Type: 
  Country: None (occurrence: None)
  Receive Date: 20100421
  Receipt Date: 20100421
  Transmission Date: 20101027
  Serious: Yes (Hospitalization)
  Sender: FDA-Public Use
  Company Number: None

PATIENT
  Age: 17 Year
  Sex: Female
  Weight: 46 kg

DRUGS (2)
  1. EXJADE [Suspect]
     Indication: HAEMOSIDEROSIS
     Dosage: 2 TABS DAILY PO
     Route: 048
     Dates: start: 20080601, end: 20100414
  2. EXJADE [Suspect]
     Indication: HAEMOSIDEROSIS
     Dosage: 1 TAB DAILY PO
     Route: 048
     Dates: start: 20080601, end: 20100414

REACTIONS (5)
  - HEPATIC ENCEPHALOPATHY [None]
  - HYPERAMMONAEMIA [None]
  - MENTAL STATUS CHANGES [None]
  - SICKLE CELL ANAEMIA WITH CRISIS [None]
  - UNRESPONSIVE TO STIMULI [None]
